FAERS Safety Report 16231939 (Version 2)
Quarter: 2019Q2

REPORT INFORMATION
  Report Type: Spontaneous
  Country: FR (occurrence: FR)
  Receive Date: 20190424
  Receipt Date: 20190509
  Transmission Date: 20190711
  Serious: Yes (Hospitalization)
  Sender: FDA-Public Use
  Company Number: FR-TEVA-2019-FR-1041536

PATIENT
  Age: 77 Year
  Sex: Male
  Weight: 59 kg

DRUGS (5)
  1. AZILECT [Concomitant]
     Active Substance: RASAGILINE MESYLATE
     Indication: PARKINSON^S DISEASE
     Dosage: 1 DOSAGE FORMS DAILY;
     Route: 048
     Dates: start: 20160101
  2. CITALOPRAM (BROMHYDRATE DE) [Suspect]
     Active Substance: CITALOPRAM HYDROBROMIDE
     Indication: DEPRESSION
     Dosage: 20 MILLIGRAM DAILY;
     Route: 048
     Dates: start: 20190108, end: 20190204
  3. SINEMET LP 100 MG/25 MG, COMPRIM? ? LIB?RATION PROLONG?E [Concomitant]
     Indication: PARKINSON^S DISEASE
     Dosage: 2 DOSAGE FORMS DAILY;
     Route: 048
     Dates: start: 20160101
  4. CARBIDOPA LEVODOPA TEVA 25 MG/250 MG, COMPRIM? S?CABLE [Concomitant]
     Indication: PARKINSON^S DISEASE
     Dosage: 5 DOSAGE FORMS DAILY; SCORED TABLET
     Route: 048
     Dates: start: 20160101
  5. CLOZAPINE. [Concomitant]
     Active Substance: CLOZAPINE
     Indication: BEHAVIOUR DISORDER
     Dosage: 50 MILLIGRAM DAILY;
     Route: 048
     Dates: start: 20170101

REACTIONS (1)
  - Hepatocellular injury [Recovered/Resolved]

NARRATIVE: CASE EVENT DATE: 20190204
